FAERS Safety Report 4817589-0 (Version None)
Quarter: 2005Q4

REPORT INFORMATION
  Report Type: 
  Country: None (occurrence: None)
  Receive Date: 20051031
  Receipt Date: 20051021
  Transmission Date: 20060501
  Serious: Yes (Hospitalization)
  Sender: FDA-Public Use
  Company Number: 2005-08-0469

PATIENT
  Age: 46 Year
  Sex: Female
  Weight: 52 kg

DRUGS (5)
  1. PEG-INTRON [Suspect]
     Indication: HEPATITIS C
     Dosage: SEE IMAGE
     Route: 058
     Dates: start: 20050311, end: 20050619
  2. PEG-INTRON [Suspect]
     Indication: HEPATITIS C
     Dosage: SEE IMAGE
     Route: 058
     Dates: start: 20050311, end: 20050829
  3. PEG-INTRON [Suspect]
     Indication: HEPATITIS C
     Dosage: SEE IMAGE
     Route: 058
     Dates: start: 20050620, end: 20050829
  4. REBETOL [Suspect]
     Indication: HEPATITIS C
     Dosage: 600 MG ORAL
     Route: 048
     Dates: start: 20050311, end: 20050905
  5. FERROUS CITRATE [Concomitant]

REACTIONS (6)
  - BREAST CANCER FEMALE [None]
  - CONSTIPATION [None]
  - IMPAIRED HEALING [None]
  - INSOMNIA [None]
  - PYREXIA [None]
  - SUTURE RUPTURE [None]
